FAERS Safety Report 6628691-5 (Version None)
Quarter: 2010Q1

REPORT INFORMATION
  Report Type: 
  Country: None (occurrence: None)
  Receive Date: 20100225
  Receipt Date: 20090416
  Transmission Date: 20100710
  Serious: Yes (Other)
  Sender: FDA-Public Use
  Company Number: 627869

PATIENT
  Sex: Male

DRUGS (3)
  1. ACCUTANE [Suspect]
     Indication: ACNE
     Dates: start: 19990608, end: 20040731
  2. AMNESTEEM [Suspect]
     Indication: ACNE
     Dates: start: 20040507, end: 20040731
  3. CLARAVIS [Suspect]
     Indication: ACNE
     Dates: start: 20070712, end: 20071114

REACTIONS (1)
  - INFLAMMATORY BOWEL DISEASE [None]
